FAERS Safety Report 4742062-8 (Version None)
Quarter: 2005Q3

REPORT INFORMATION
  Report Type: 
  Country: None (occurrence: None)
  Receive Date: 20050810
  Receipt Date: 20050808
  Transmission Date: 20060218
  Serious: Yes (Hospitalization)
  Sender: FDA-Public Use
  Company Number: 005379

PATIENT
  Age: 47 Year
  Sex: Female

DRUGS (3)
  1. KARIVA [Suspect]
     Indication: MENORRHAGIA
     Dosage: 1.00 TABLET, QD, ORAL
     Route: 048
     Dates: start: 20040801, end: 20050704
  2. ZOLOFT [Concomitant]
  3. BUSPAR [Concomitant]

REACTIONS (1)
  - PULMONARY EMBOLISM [None]
